FAERS Safety Report 10175590 (Version 1)
Quarter: 2014Q2

REPORT INFORMATION
  Report Type: Spontaneous
  Country: US (occurrence: US)
  Receive Date: 20140516
  Receipt Date: 20140516
  Transmission Date: 20141212
  Serious: No
  Sender: FDA-Public Use
  Company Number: US-009507513-1405USA007269

PATIENT
  Age: 63 Year
  Sex: Female

DRUGS (2)
  1. JANUMET [Suspect]
     Indication: DIABETES MELLITUS
     Dosage: DOSE/FREQUENCY-50MG SITAGLIPTIN/1000 MG METFORMIN HYDROCHLORIDE
     Route: 048
     Dates: start: 201307
  2. ALTACE [Concomitant]

REACTIONS (1)
  - Retinal disorder [Unknown]
